FAERS Safety Report 18731894 (Version 1)
Quarter: 2021Q1

REPORT INFORMATION
  Report Type: Spontaneous
  Country: US (occurrence: US)
  Receive Date: 20210112
  Receipt Date: 20210112
  Transmission Date: 20210419
  Serious: Yes (Other)
  Sender: FDA-Public Use
  Company Number: US-PRINSTON PHARMACEUTICAL INC.-2020PRN00246

PATIENT
  Sex: Male
  Weight: 63.49 kg

DRUGS (11)
  1. RISPERIDONE. [Suspect]
     Active Substance: RISPERIDONE
     Indication: ONYCHOPHAGIA
  2. UNSPECIFIED GROWTH HORMONES [Concomitant]
  3. UNSPECIFIED SEIZURE MEDICATION [Concomitant]
  4. UNSPECIFIED SHOTS FOR OSTEOPOROSIS [Concomitant]
  5. UNSPECIFIED VITAMINS [Concomitant]
     Active Substance: VITAMINS
  6. RISPERIDONE. [Suspect]
     Active Substance: RISPERIDONE
     Indication: AUTISM SPECTRUM DISORDER
     Dosage: 1 MG, 1X/DAY AT NIGHT
     Route: 048
     Dates: start: 2019, end: 202007
  7. SYNTHROID [Concomitant]
     Active Substance: LEVOTHYROXINE SODIUM
  8. HYDROCORTISONE. [Concomitant]
     Active Substance: HYDROCORTISONE
  9. RISPERIDONE. [Suspect]
     Active Substance: RISPERIDONE
     Indication: TREMOR
  10. RISPERIDONE. [Suspect]
     Active Substance: RISPERIDONE
     Indication: FETISHISM
  11. RISPERIDONE. [Suspect]
     Active Substance: RISPERIDONE
     Indication: NERVOUSNESS

REACTIONS (11)
  - Tongue spasm [Not Recovered/Not Resolved]
  - Lip disorder [Not Recovered/Not Resolved]
  - Musculoskeletal stiffness [Not Recovered/Not Resolved]
  - Intentional product misuse [Recovered/Resolved]
  - Dyskinesia [Recovering/Resolving]
  - Sensory disturbance [Not Recovered/Not Resolved]
  - Unevaluable event [Unknown]
  - Tardive dyskinesia [Not Recovered/Not Resolved]
  - Muscle twitching [Not Recovered/Not Resolved]
  - Blepharospasm [Not Recovered/Not Resolved]
  - Dry mouth [Not Recovered/Not Resolved]

NARRATIVE: CASE EVENT DATE: 2019
